FAERS Safety Report 4340417-7 (Version None)
Quarter: 2004Q2

REPORT INFORMATION
  Report Type: 
  Country: None (occurrence: None)
  Receive Date: 20040414
  Receipt Date: 20040406
  Transmission Date: 20050107
  Serious: Yes (Hospitalization)
  Sender: FDA-Public Use
  Company Number: 2004204290JP

PATIENT
  Age: 71 Year
  Sex: Female
  Weight: 47 kg

DRUGS (9)
  1. CABERGOLINE [Suspect]
     Indication: PARKINSON'S DISEASE
     Dosage: 1 MG/DAY, ORAL
     Route: 048
     Dates: start: 20030601, end: 20040316
  2. NEO DOPASTON [Concomitant]
  3. SYMMETREL [Concomitant]
  4. ARTANE [Concomitant]
  5. DEPAS (ETIZOLAM) [Concomitant]
  6. INDERAL [Concomitant]
  7. LANDSEN [Concomitant]
  8. EPADEL (ETHYL ICOSAPENTATE) [Concomitant]
  9. DOPS (DROXIDOPA) [Concomitant]

REACTIONS (8)
  - DELIRIUM [None]
  - DISEASE PROGRESSION [None]
  - HALLUCINATION [None]
  - NEUROLEPTIC MALIGNANT SYNDROME [None]
  - OVERDOSE [None]
  - PARKINSON'S DISEASE [None]
  - PERSECUTORY DELUSION [None]
  - TREATMENT NONCOMPLIANCE [None]
